FAERS Safety Report 14025740 (Version 1)
Quarter: 2017Q3

REPORT INFORMATION
  Report Type: Spontaneous
  Country: CH (occurrence: CH)
  Receive Date: 20170929
  Receipt Date: 20170929
  Transmission Date: 20171128
  Serious: Yes (Other)
  Sender: FDA-Public Use
  Company Number: CH-FRESENIUS KABI-FK201708076

PATIENT
  Age: 80 Year
  Sex: Male

DRUGS (4)
  1. LEVOFLOXACIN (MANUFACTURER UNKNOWN) [Suspect]
     Active Substance: LEVOFLOXACIN
     Indication: STREPTOCOCCAL INFECTION
  2. AMOXICILLIN. [Suspect]
     Active Substance: AMOXICILLIN
     Indication: STREPTOCOCCAL INFECTION
  3. AMOXICILLIN. [Suspect]
     Active Substance: AMOXICILLIN
     Indication: DEVICE RELATED INFECTION
  4. LEVOFLOXACIN (MANUFACTURER UNKNOWN) [Suspect]
     Active Substance: LEVOFLOXACIN
     Indication: DEVICE RELATED INFECTION
     Route: 065

REACTIONS (1)
  - Renal failure [Unknown]
